FAERS Safety Report 14193236 (Version 1)
Quarter: 2017Q4

REPORT INFORMATION
  Report Type: Report from Study
  Country: None (occurrence: US)
  Receive Date: 20171116
  Receipt Date: 20171116
  Transmission Date: 20180321
  Serious: Yes (Hospitalization, Other)
  Sender: FDA-Public Use
  Company Number: US-ABBVIE-17K-163-2159890-00

PATIENT
  Sex: Female

DRUGS (1)
  1. HUMIRA [Suspect]
     Active Substance: ADALIMUMAB
     Indication: CROHN^S DISEASE
     Route: 058

REACTIONS (6)
  - Diarrhoea [Recovering/Resolving]
  - Parenteral nutrition [Recovering/Resolving]
  - Psoriasis [Recovering/Resolving]
  - Hospitalisation [Recovering/Resolving]
  - Peritoneal permeability increased [Recovering/Resolving]
  - Weight fluctuation [Recovering/Resolving]
